FAERS Safety Report 17906067 (Version 1)
Quarter: 2020Q2

REPORT INFORMATION
  Report Type: Spontaneous
  Country: US (occurrence: US)
  Receive Date: 20200616
  Receipt Date: 20200616
  Transmission Date: 20200714
  Serious: No
  Sender: FDA-Public Use
  Company Number: US-ROCHE-2475644

PATIENT
  Sex: Female
  Weight: 66.74 kg

DRUGS (1)
  1. ACTEMRA [Suspect]
     Active Substance: TOCILIZUMAB
     Indication: RHEUMATOID ARTHRITIS
     Route: 058
     Dates: start: 20191109

REACTIONS (6)
  - Feeling jittery [Unknown]
  - Tourette^s disorder [Unknown]
  - Insomnia [Unknown]
  - Abdominal pain upper [Unknown]
  - Muscular weakness [Unknown]
  - Muscle spasms [Unknown]
